FAERS Safety Report 20083261 (Version 1)
Quarter: 2021Q4

REPORT INFORMATION
  Report Type: Spontaneous
  Country: DE (occurrence: DE)
  Receive Date: 20211117
  Receipt Date: 20211117
  Transmission Date: 20220303
  Serious: Yes (Hospitalization)
  Sender: FDA-Public Use
  Company Number: DE-ADRED-07041-02

PATIENT
  Age: 85 Year
  Sex: Male
  Weight: 58 kg

DRUGS (6)
  1. ABIRATERONE [Suspect]
     Active Substance: ABIRATERONE
     Indication: Product used for unknown indication
     Dosage: 500 MILLIGRAM, Q2D (0-0-2-0)
     Route: 048
  2. CALCIUM +D                         /00944201/ [Concomitant]
     Dosage: UNK UNK, QD (1250/0.01 MG)
     Route: 048
  3. ENOXAPARIN [Concomitant]
     Active Substance: ENOXAPARIN
     Dosage: 40 MILLIGRAM, QD
     Route: 058
  4. METAMIZOL                          /06276701/ [Concomitant]
     Dosage: 500 MILLIGRAM
     Route: 048
  5. PREDNISOLON                        /00016201/ [Concomitant]
     Dosage: 5 MILLIGRAM, Q2D
     Route: 048
  6. TRAMADOL [Concomitant]
     Active Substance: TRAMADOL
     Dosage: 5 MILLIGRAM
     Route: 048

REACTIONS (2)
  - Dysuria [Recovering/Resolving]
  - Haematuria [Recovering/Resolving]
